FAERS Safety Report 9983298 (Version 1)
Quarter: 2014Q1

REPORT INFORMATION
  Report Type: Spontaneous
  Country: US (occurrence: US)
  Receive Date: 20140307
  Receipt Date: 20140307
  Transmission Date: 20141002
  Serious: Yes (Death, Hospitalization, Other)
  Sender: FDA-Public Use
  Company Number: US-MERCK-1403USA001217

PATIENT
  Age: 73 Year
  Sex: Male

DRUGS (6)
  1. NOXAFIL [Suspect]
     Indication: ANTIFUNGAL TREATMENT
     Dosage: 200 MG, TID
     Route: 048
     Dates: start: 201207
  2. OMEPRAZOLE [Concomitant]
     Route: 048
  3. ACYCLOVIR [Concomitant]
  4. HYDRALAZINE [Concomitant]
  5. PROCRIT [Concomitant]
  6. CYTARABINE [Concomitant]

REACTIONS (4)
  - Leukaemic infiltration pulmonary [Fatal]
  - Myelodysplastic syndrome [Fatal]
  - Acute respiratory failure [Fatal]
  - Pneumonia [Fatal]
